FAERS Safety Report 12163235 (Version 1)
Quarter: 2016Q1

REPORT INFORMATION
  Report Type: Spontaneous
  Country: US (occurrence: US)
  Receive Date: 20160309
  Receipt Date: 20160309
  Transmission Date: 20160526
  Serious: No
  Sender: FDA-Public Use
  Company Number: US-ROCHE-1570264

PATIENT
  Sex: Female

DRUGS (20)
  1. RELPAX [Concomitant]
     Active Substance: ELETRIPTAN HYDROBROMIDE
  2. NASONEX [Concomitant]
     Active Substance: MOMETASONE FUROATE
  3. SINGULAIR [Concomitant]
     Active Substance: MONTELUKAST SODIUM
  4. SYNAREL [Concomitant]
     Active Substance: NAFARELIN ACETATE
  5. FEXOFENADINE [Concomitant]
     Active Substance: FEXOFENADINE\FEXOFENADINE HYDROCHLORIDE
  6. NASALCROM [Concomitant]
     Active Substance: CROMOLYN SODIUM
  7. SUMATRIPTAN. [Concomitant]
     Active Substance: SUMATRIPTAN
  8. ONDANSETRONUM [Concomitant]
  9. VITAMIN E [Concomitant]
     Active Substance: .ALPHA.-TOCOPHEROL
  10. CROMOLYN SODIUM. [Concomitant]
     Active Substance: CROMOLYN SODIUM
  11. CIMETIDINE [Concomitant]
     Active Substance: CIMETIDINE
  12. ACIPHEX [Concomitant]
     Active Substance: RABEPRAZOLE SODIUM
  13. XOLAIR [Suspect]
     Active Substance: OMALIZUMAB
     Indication: MASTOCYTOSIS
     Route: 065
     Dates: start: 20150407
  14. CHLORPHENIRAMINE MALEATE. [Concomitant]
     Active Substance: CHLORPHENIRAMINE MALEATE
  15. VITAMIN D3 [Concomitant]
     Active Substance: CHOLECALCIFEROL
  16. IMODIUM [Concomitant]
     Active Substance: LOPERAMIDE HYDROCHLORIDE
  17. VITAMIN C [Concomitant]
     Active Substance: ASCORBIC ACID
  18. XOLAIR [Suspect]
     Active Substance: OMALIZUMAB
     Indication: IDIOPATHIC URTICARIA
  19. RANITIDIN [Concomitant]
     Active Substance: RANITIDINE HYDROCHLORIDE
  20. VITAMIN B6 [Concomitant]
     Active Substance: PYRIDOXINE HYDROCHLORIDE

REACTIONS (8)
  - Myalgia [Not Recovered/Not Resolved]
  - Fatigue [Not Recovered/Not Resolved]
  - Bone pain [Unknown]
  - Flushing [Recovered/Resolved]
  - Vision blurred [Not Recovered/Not Resolved]
  - Feeling abnormal [Unknown]
  - Pruritus [Recovered/Resolved]
  - Insomnia [Not Recovered/Not Resolved]
